FAERS Safety Report 20721855 (Version 1)
Quarter: 2022Q2

REPORT INFORMATION
  Report Type: Report from Study
  Country: NL (occurrence: None)
  Receive Date: 20220418
  Receipt Date: 20220418
  Transmission Date: 20220721
  Serious: Yes (Hospitalization)
  Sender: FDA-Public Use
  Company Number: NL-ROCHE-3074943

PATIENT
  Age: 66 Year
  Sex: Male

DRUGS (5)
  1. BEVACIZUMAB [Suspect]
     Active Substance: BEVACIZUMAB
     Indication: Colorectal cancer metastatic
     Dosage: DATE OF LAST DOSE: 27/OCT/2021
     Route: 042
     Dates: start: 20210901
  2. CAPECITABINE [Suspect]
     Active Substance: CAPECITABINE
     Indication: Colorectal cancer metastatic
     Route: 048
     Dates: start: 20210901, end: 20211027
  3. CAPECITABINE [Suspect]
     Active Substance: CAPECITABINE
     Dosage: DATE OF LAST DOSE: 30/NOV/2021
     Route: 048
     Dates: start: 20211103
  4. OXALIPLATIN [Suspect]
     Active Substance: OXALIPLATIN
     Indication: Colorectal cancer metastatic
     Route: 042
     Dates: start: 20210901, end: 20211027
  5. OXALIPLATIN [Suspect]
     Active Substance: OXALIPLATIN
     Dosage: DATE OF LAST DOSE: 30/NOV/2021
     Route: 042
     Dates: start: 20211103

REACTIONS (1)
  - Impaired gastric emptying [Recovering/Resolving]

NARRATIVE: CASE EVENT DATE: 20211216
